FAERS Safety Report 5986431-7 (Version None)
Quarter: 2008Q4

REPORT INFORMATION
  Report Type: 
  Country: None (occurrence: None)
  Receive Date: 20081203
  Receipt Date: 20081028
  Transmission Date: 20090506
  Serious: No
  Sender: FDA-Public Use
  Company Number: 2008-186632-NL

PATIENT
  Age: 47 Year
  Sex: Female

DRUGS (3)
  1. MIRTAZAPINE [Suspect]
  2. ZOPICLONE [Suspect]
  3. ALCOHOL [Suspect]

REACTIONS (4)
  - FEELING COLD [None]
  - MIOSIS [None]
  - TACHYCARDIA [None]
  - VOMITING [None]
